FAERS Safety Report 13382559 (Version 1)
Quarter: 2017Q1

REPORT INFORMATION
  Report Type: Spontaneous
  Country: US (occurrence: US)
  Receive Date: 20170329
  Receipt Date: 20170329
  Transmission Date: 20170429
  Serious: No
  Sender: FDA-Public Use
  Company Number: US-AMGEN-USASP2017043495

PATIENT
  Sex: Male

DRUGS (1)
  1. ENBREL [Suspect]
     Active Substance: ETANERCEPT
     Indication: PRODUCT USED FOR UNKNOWN INDICATION
     Dosage: 50 MG, QWK
     Route: 065

REACTIONS (7)
  - Rash erythematous [Recovering/Resolving]
  - Drug dose omission [Unknown]
  - Musculoskeletal pain [Recovering/Resolving]
  - Rash generalised [Recovering/Resolving]
  - Rash pruritic [Recovering/Resolving]
  - Swelling [Recovering/Resolving]
  - Gout [Unknown]

NARRATIVE: CASE EVENT DATE: 201703
